FAERS Safety Report 22275454 (Version 2)
Quarter: 2023Q2

REPORT INFORMATION
  Report Type: Spontaneous
  Country: DE (occurrence: DE)
  Receive Date: 20230502
  Receipt Date: 20230515
  Transmission Date: 20230722
  Serious: Yes (Hospitalization)
  Sender: FDA-Public Use
  Company Number: DE-DSJP-DSE-2023-116928

PATIENT
  Age: 57 Year
  Sex: Male
  Weight: 72 kg

DRUGS (5)
  1. EDOXABAN TOSYLATE [Suspect]
     Active Substance: EDOXABAN TOSYLATE
     Indication: Atrial fibrillation
     Dosage: 60 MG, QD (1 X 60 MG) (0 ? 0 ? 1 ? 0 TABLETS)
     Route: 065
     Dates: start: 201903
  2. BISOPROLOL TAD [Concomitant]
     Indication: Product used for unknown indication
     Dosage: 2.5 MG, BID (1 ? 0 ? 1 ? 0 TABLETS)
     Route: 065
  3. ATORVASTATIN SODIUM [Concomitant]
     Active Substance: ATORVASTATIN SODIUM
     Indication: Product used for unknown indication
     Dosage: UNK (0 ? 0 ? 0.5 ? 0 TABLETS)
     Route: 065
  4. VITAMIN D SANDOZ [Concomitant]
     Indication: Product used for unknown indication
     Dosage: 1000 IU, QD (1 ? 0 ? 0 ? 0 CAPSULES)
     Route: 065
  5. CANDESARTAN CILEXETIL [Concomitant]
     Active Substance: CANDESARTAN CILEXETIL
     Indication: Product used for unknown indication
     Dosage: UNK (0 ? 0 ? 0.5 ? 0 TABLETS)
     Route: 065

REACTIONS (1)
  - Cerebral infarction [Recovered/Resolved]

NARRATIVE: CASE EVENT DATE: 20230421
